FAERS Safety Report 21004149 (Version 1)
Quarter: 2022Q2

REPORT INFORMATION
  Report Type: Spontaneous
  Country: US (occurrence: US)
  Receive Date: 20220624
  Receipt Date: 20220624
  Transmission Date: 20220721
  Serious: No
  Sender: FDA-Public Use
  Company Number: US-AVEO ONCOLOGY-2022-AVEO-US000169

PATIENT

DRUGS (11)
  1. FOTIVDA [Suspect]
     Active Substance: TIVOZANIB HYDROCHLORIDE
     Indication: Renal cell carcinoma
     Dosage: 1.34 MG, DAILY FOR 21 DAYS, THEN OFF 7 DAYS
     Route: 048
     Dates: start: 20220207
  2. FOTIVDA [Suspect]
     Active Substance: TIVOZANIB HYDROCHLORIDE
     Dosage: 1.34 DAILY FOR 21 DAYS, THEN OFF 7 DAYS
     Route: 048
     Dates: start: 20220207
  3. LYRICA [Concomitant]
     Active Substance: PREGABALIN
  4. SENNA [Concomitant]
     Active Substance: SENNA LEAF\SENNOSIDES\SENNOSIDES A AND B
  5. AMLODIPINE [Concomitant]
     Active Substance: AMLODIPINE BESYLATE
  6. LIPITOR [Concomitant]
     Active Substance: ATORVASTATIN CALCIUM
  7. DEPAKOTE [Concomitant]
     Active Substance: DIVALPROEX SODIUM
  8. METOPROLOL [Concomitant]
     Active Substance: METOPROLOL
  9. TRAMADOL [Concomitant]
     Active Substance: TRAMADOL
  10. ASPIRIN [Concomitant]
     Active Substance: ASPIRIN
  11. DIVALPROEX SODIUM [Concomitant]
     Active Substance: DIVALPROEX SODIUM

REACTIONS (5)
  - Amnesia [Unknown]
  - Constipation [Unknown]
  - Asthenia [Recovering/Resolving]
  - Product dose omission issue [Unknown]
  - Diarrhoea [Unknown]
